FAERS Safety Report 9339002 (Version 1)
Quarter: 2013Q2

REPORT INFORMATION
  Report Type: Spontaneous
  Country: US (occurrence: None)
  Receive Date: 20130528
  Receipt Date: 20130528
  Transmission Date: 20140414
  Serious: Yes (Hospitalization)
  Sender: FDA-Public Use
  Company Number: 2013036050

PATIENT
  Sex: Male
  Weight: 102.06 kg

DRUGS (11)
  1. HIZENTRA (IMMUNOGLOBULIN HUMAN NORMAL) [Suspect]
     Indication: IMMUNODEFICIENCY COMMON VARIABLE
     Dosage: 15G 1X/WEEK, IN 3-4 SITES OVER 1-2 HOURS
     Route: 058
  2. PROTONIX [Concomitant]
  3. NORVASC [Concomitant]
  4. LIPITOR [Concomitant]
  5. DIOVAN [Concomitant]
  6. GLUCOPHAGE [Concomitant]
  7. LANTUS [Concomitant]
  8. GLIMEPIRIDE [Concomitant]
  9. DIPHENHYDRAMINE [Concomitant]
  10. EPI PEN [Concomitant]
  11. DIABETES MEDICATION [Suspect]

REACTIONS (5)
  - Blood glucose increased [None]
  - Influenza like illness [None]
  - Feeling abnormal [None]
  - Abdominal discomfort [None]
  - Nausea [None]
